FAERS Safety Report 6179012-6 (Version None)
Quarter: 2009Q2

REPORT INFORMATION
  Report Type: 
  Country: None (occurrence: None)
  Receive Date: 20090505
  Receipt Date: 20090428
  Transmission Date: 20091009
  Serious: Yes (Life-Threatening, Hospitalization)
  Sender: FDA-Public Use
  Company Number: ES-PFIZER INC-2009204222

PATIENT

DRUGS (6)
  1. DOXAZOSIN MESYLATE [Suspect]
     Indication: BLOOD PRESSURE INCREASED
     Dosage: 4 MG, 1X/DAY
     Route: 048
     Dates: start: 20041001, end: 20081220
  2. ARCOXIA [Suspect]
     Indication: ARTHRALGIA
     Dosage: 60 MG, 1X/DAY
     Route: 048
     Dates: start: 20081120, end: 20081130
  3. LORAZEPAM [Suspect]
     Indication: SLEEP DISORDER DUE TO A GENERAL MEDICAL CONDITION
     Dosage: UNK MG, 1X/DAY
     Route: 048
     Dates: start: 20080601
  4. ALLOPURINOL [Suspect]
     Indication: HYPERURICAEMIA
     Dosage: UNK
     Route: 048
     Dates: start: 20080324, end: 20081220
  5. OMEPRAZOLE [Concomitant]
     Indication: GASTRITIS PROPHYLAXIS
     Dosage: UNK
     Route: 048
     Dates: start: 20080324
  6. SIMVASTATIN [Concomitant]
     Indication: DYSLIPIDAEMIA
     Dosage: UNK
     Route: 048
     Dates: start: 20060101, end: 20081220

REACTIONS (1)
  - IDIOPATHIC THROMBOCYTOPENIC PURPURA [None]
